FAERS Safety Report 20885225 (Version 1)
Quarter: 2022Q2

REPORT INFORMATION
  Report Type: Spontaneous
  Country: US (occurrence: US)
  Receive Date: 20220527
  Receipt Date: 20220527
  Transmission Date: 20220721
  Serious: No
  Sender: FDA-Public Use
  Company Number: US-TAKEDA-2022TUS034637

PATIENT
  Sex: Female

DRUGS (1)
  1. GAMMAGARD LIQUID [Suspect]
     Active Substance: HUMAN IMMUNOGLOBULIN G
     Indication: Multifocal motor neuropathy
     Dosage: 50 MILLIGRAM, 2/WEEK
     Route: 042
     Dates: start: 202001

REACTIONS (5)
  - Fine motor skill dysfunction [Unknown]
  - Weight decreased [Unknown]
  - Decreased appetite [Unknown]
  - Peripheral coldness [Unknown]
  - Fatigue [Unknown]
